FAERS Safety Report 16959769 (Version 1)
Quarter: 2019Q4

REPORT INFORMATION
  Report Type: Spontaneous
  Country: GB (occurrence: GB)
  Receive Date: 20191025
  Receipt Date: 20191025
  Transmission Date: 20200122
  Serious: Yes (Other)
  Sender: FDA-Public Use
  Company Number: GB-MICRO LABS LIMITED-ML2019-02909

PATIENT
  Age: 75 Year
  Sex: Female
  Weight: 95.25 kg

DRUGS (5)
  1. LOSARTAN. [Suspect]
     Active Substance: LOSARTAN
     Indication: HYPERTENSION
     Route: 048
     Dates: start: 20190919, end: 201909
  2. APIXABAN [Concomitant]
     Active Substance: APIXABAN
  3. LOSARTAN. [Suspect]
     Active Substance: LOSARTAN
     Indication: HYPERTENSION
     Dosage: 12.5MG ONE A DAY, 50MG ONE A DAY 25MG ONE A DAY
     Route: 048
     Dates: start: 201909, end: 201909
  4. INDAPAMIDE. [Concomitant]
     Active Substance: INDAPAMIDE
  5. LOSARTAN. [Suspect]
     Active Substance: LOSARTAN
     Indication: HYPERTENSION
     Route: 048
     Dates: start: 201909, end: 20190926

REACTIONS (3)
  - Blood potassium decreased [Unknown]
  - Arrhythmia [Recovered/Resolved]
  - Chest pain [Unknown]

NARRATIVE: CASE EVENT DATE: 20190925
